FAERS Safety Report 18957850 (Version 1)
Quarter: 2021Q1

REPORT INFORMATION
  Report Type: Spontaneous
  Country: US (occurrence: US)
  Receive Date: 20210302
  Receipt Date: 20210302
  Transmission Date: 20210420
  Serious: Yes (Other)
  Sender: FDA-Public Use
  Company Number: None

PATIENT
  Sex: Female

DRUGS (1)
  1. OXYBUTYNIN ER [Suspect]
     Active Substance: OXYBUTYNIN

REACTIONS (2)
  - Abnormal behaviour [None]
  - Mood altered [None]
